FAERS Safety Report 8295069-0 (Version None)
Quarter: 2012Q2

REPORT INFORMATION
  Report Type: 
  Country: None (occurrence: None)
  Receive Date: 20120413
  Receipt Date: 20120402
  Transmission Date: 20120825
  Serious: Yes (Other)
  Sender: FDA-Public Use
  Company Number: 216908

PATIENT
  Age: 68 Year
  Sex: Female
  Weight: 55 kg

DRUGS (2)
  1. INNOHEP [Suspect]
     Indication: THROMBOPHLEBITIS SUPERFICIAL
     Dosage: 0.55 ML (1 IN 1 D), SUBCUTANEOUS
     Route: 058
     Dates: start: 20120109, end: 20120224
  2. INNOHEP [Suspect]
     Indication: OFF LABEL USE
     Dosage: 0.55 ML (1 IN 1 D), SUBCUTANEOUS
     Route: 058
     Dates: start: 20120109, end: 20120224

REACTIONS (2)
  - OFF LABEL USE [None]
  - THROMBOPHLEBITIS SUPERFICIAL [None]
